FAERS Safety Report 5943708-9 (Version None)
Quarter: 2008Q4

REPORT INFORMATION
  Report Type: 
  Country: None (occurrence: None)
  Receive Date: 20081106
  Receipt Date: 20081028
  Transmission Date: 20090506
  Serious: Yes (Disabling)
  Sender: FDA-Public Use
  Company Number: FR-WYE-H06676708

PATIENT
  Sex: Male

DRUGS (11)
  1. CORDARONE [Suspect]
     Route: 048
     Dates: start: 20050101, end: 20080923
  2. PREVISCAN [Concomitant]
  3. COVERSYL [Concomitant]
  4. DIFFU K [Concomitant]
  5. EFFEXOR [Concomitant]
  6. INIPOMP [Concomitant]
  7. TEMESTA [Concomitant]
  8. ALDACTONE [Concomitant]
  9. LERCAN [Concomitant]
  10. CARDENSIEL [Concomitant]
  11. LASIX [Concomitant]

REACTIONS (4)
  - BLOOD LACTATE DEHYDROGENASE INCREASED [None]
  - EOSINOPHILIA [None]
  - INTERSTITIAL LUNG DISEASE [None]
  - WEIGHT DECREASED [None]
